FAERS Safety Report 13382882 (Version 1)
Quarter: 2017Q1

REPORT INFORMATION
  Report Type: Spontaneous
  Country: FR (occurrence: FR)
  Receive Date: 20170329
  Receipt Date: 20170329
  Transmission Date: 20170429
  Serious: Yes (Hospitalization, Other)
  Sender: FDA-Public Use
  Company Number: FR-PFIZER INC-2017126568

PATIENT
  Age: 74 Year
  Sex: Male
  Weight: 87 kg

DRUGS (15)
  1. ZAVEDOS [Suspect]
     Active Substance: IDARUBICIN
     Dosage: 24 MG, UNK
     Route: 041
     Dates: start: 20160812, end: 20160812
  2. KIDROLASE [Suspect]
     Active Substance: ASPARAGINASE
     Dosage: 11800 UNK, UNK
     Dates: start: 20160816, end: 20160816
  3. NEOFORDEX [Concomitant]
     Active Substance: DEXAMETHASONE ACETATE
     Dosage: 40 MG, UNK
     Route: 048
     Dates: start: 20160812, end: 20160814
  4. GRANULOCYTE COLONY STIMULATING FACTOR [Concomitant]
     Active Substance: GRANULOCYTE COLONY-STIMULATING FACTOR NOS
     Dosage: UNK
     Dates: start: 20160818, end: 20160819
  5. FOLINATE DE CALCIUM ZENTIVA [Concomitant]
     Active Substance: LEUCOVORIN CALCIUM
     Dosage: 50 MG, DAILY
     Route: 042
     Dates: start: 20160813, end: 20160813
  6. FOLINATE DE CALCIUM ZENTIVA [Concomitant]
     Active Substance: LEUCOVORIN CALCIUM
     Dosage: 50 MG, 4X/DAY
     Route: 042
     Dates: start: 20160814, end: 20160814
  7. FOLINATE DE CALCIUM ZENTIVA [Concomitant]
     Active Substance: LEUCOVORIN CALCIUM
     Dosage: 50 MG, 3X/DAY
     Route: 042
     Dates: start: 20160817, end: 20160817
  8. NEOFORDEX [Concomitant]
     Active Substance: DEXAMETHASONE ACETATE
     Dosage: 40 MG, UNK
     Dates: start: 20160816
  9. KIDROLASE [Suspect]
     Active Substance: ASPARAGINASE
     Dosage: 11800 IU, UNK
     Route: 041
     Dates: start: 20160813, end: 20160813
  10. METHOTREXATE BIODIM [Suspect]
     Active Substance: METHOTREXATE
     Dosage: 15 MG, UNK
     Route: 024
     Dates: start: 20160816, end: 20160816
  11. DEPO-MEDROL [Concomitant]
     Active Substance: METHYLPREDNISOLONE ACETATE
     Dosage: 40 MG, UNK
     Route: 024
     Dates: start: 20160816, end: 20160816
  12. FOLINATE DE CALCIUM ZENTIVA [Concomitant]
     Active Substance: LEUCOVORIN CALCIUM
     Dosage: 50 MG, 4X/DAY
     Route: 042
     Dates: start: 20160816, end: 20160816
  13. ARACYTINE [Suspect]
     Active Substance: CYTARABINE
     Dosage: 40 MG, UNK
     Route: 024
     Dates: start: 20160816, end: 20160816
  14. METHOTREXATE (METHOTREXATE SODIUM) [Suspect]
     Active Substance: METHOTREXATE SODIUM
     Dosage: 6000 MG, UNK
     Route: 041
     Dates: start: 20160812, end: 20160812
  15. KIDROLASE [Suspect]
     Active Substance: ASPARAGINASE
     Dosage: 11800 IU, UNK
     Dates: start: 20160818, end: 20160818

REACTIONS (4)
  - Hypofibrinogenaemia [Recovered/Resolved]
  - Febrile bone marrow aplasia [Recovered/Resolved]
  - Acute hepatic failure [Recovered/Resolved]
  - Antithrombin III deficiency [Recovered/Resolved]

NARRATIVE: CASE EVENT DATE: 20160821
